FAERS Safety Report 6655235-4 (Version None)
Quarter: 2010Q1

REPORT INFORMATION
  Report Type: 
  Country: None (occurrence: None)
  Receive Date: 20100329
  Receipt Date: 20100316
  Transmission Date: 20100710
  Serious: Yes (Hospitalization, Other)
  Sender: FDA-Public Use
  Company Number: US-ELI_LILLY_AND_COMPANY-US201002005426

PATIENT
  Sex: Female

DRUGS (10)
  1. FORTEO [Suspect]
     Indication: OSTEOPOROSIS
     Dosage: 20 UG, DAILY (1/D)
     Route: 065
     Dates: start: 20090501
  2. FORTEO [Suspect]
     Dosage: 20 UG, DAILY (1/D)
  3. FISH OIL [Concomitant]
  4. VITAMIN B-12 [Concomitant]
     Dosage: 300 UG, DAILY (1/D)
  5. VITAMIN D [Concomitant]
     Dosage: 2000 IU, DAILY (1/D)
  6. ASPIRIN [Concomitant]
     Dosage: 81 MG, DAILY (1/D)
  7. FENOFIBRATE [Concomitant]
     Dosage: 67 MG, DAILY (1/D)
  8. PAROXETINE HCL [Concomitant]
     Dosage: 20 MG, DAILY (1/D)
  9. AMLODIPINE [Concomitant]
     Dosage: 5 MG, DAILY (1/D)
  10. LORAZEPAM [Concomitant]
     Dosage: 1 MG, EACH EVENING

REACTIONS (8)
  - ARTHRALGIA [None]
  - BONE PAIN [None]
  - FALL [None]
  - HIP FRACTURE [None]
  - JOINT CREPITATION [None]
  - MUSCLE SPASMS [None]
  - PAIN IN EXTREMITY [None]
  - PRURITUS [None]
